FAERS Safety Report 18176429 (Version 1)
Quarter: 2020Q3

REPORT INFORMATION
  Report Type: Spontaneous
  Country: DE (occurrence: DE)
  Receive Date: 20200820
  Receipt Date: 20200820
  Transmission Date: 20201103
  Serious: Yes (Life-Threatening, Hospitalization)
  Sender: FDA-Public Use
  Company Number: DE-MYLANLABS-2020M1071494

PATIENT
  Age: 89 Year
  Sex: Female

DRUGS (8)
  1. EDOXABAN [Suspect]
     Active Substance: EDOXABAN TOSYLATE
     Indication: PRODUCT USED FOR UNKNOWN INDICATION
     Dosage: 30 MG, 1?0?0?0, TABLETTEN
  2. SERTRALINE [Suspect]
     Active Substance: SERTRALINE HYDROCHLORIDE
     Indication: PRODUCT USED FOR UNKNOWN INDICATION
     Dosage: 100 MG, 1?0?0?0, TABLETTEN
  3. LEVOTHYROXINUM NATRICUM [Concomitant]
     Dosage: 100 MICROGRAM, QD, 100 ?G, 1?0?0?0, TABLETTEN
  4. METAMIZOL                          /06276701/ [Concomitant]
     Active Substance: METAMIZOLE
     Dosage: 500 MG, BEDARF, TABLETTEN
  5. B12 ANKERMANN [Concomitant]
     Dosage: 1 MG, 4 MAL PRO WOCHE JEWEILS 1 TABLETTE MORGENS, TABLETTEN
  6. TORASEMID [Concomitant]
     Active Substance: TORSEMIDE
     Dosage: 10 MILLIGRAM, QD, 10 MG, 1?0?0?0, TABLETTEN
  7. FRESUBIN CREME [Concomitant]
     Dosage: MORGENS
  8. PANTOPRAZOL                        /01263201/ [Concomitant]
     Active Substance: PANTOPRAZOLE
     Dosage: 40 MILLIGRAM, QD, 40 MG, 1?0?0?0, TABLETTEN

REACTIONS (5)
  - Atrial fibrillation [Unknown]
  - Melaena [Unknown]
  - Tachycardia [Unknown]
  - General physical health deterioration [Unknown]
  - Haematemesis [Unknown]
